FAERS Safety Report 8202830-7 (Version None)
Quarter: 2012Q1

REPORT INFORMATION
  Report Type: 
  Country: None (occurrence: None)
  Receive Date: 20120312
  Receipt Date: 20120312
  Transmission Date: 20120608
  Serious: Yes (Other)
  Sender: FDA-Public Use
  Company Number: None

PATIENT
  Age: 33 Year
  Sex: Male
  Weight: 92.986 kg

DRUGS (2)
  1. FLUOXETINE [Suspect]
     Indication: DEPRESSION
     Route: 048
     Dates: start: 20120107, end: 20120212
  2. FLUOXETINE [Concomitant]
     Dosage: 1 CAPSULE
     Route: 048
     Dates: start: 20120107, end: 20120212

REACTIONS (4)
  - SUICIDAL IDEATION [None]
  - CRYING [None]
  - PRODUCT SUBSTITUTION ISSUE [None]
  - DEPRESSION [None]
